FAERS Safety Report 7265730-5 (Version None)
Quarter: 2011Q1

REPORT INFORMATION
  Report Type: 
  Country: None (occurrence: None)
  Receive Date: 20110131
  Receipt Date: 20110121
  Transmission Date: 20110831
  Serious: No
  Sender: FDA-Public Use
  Company Number: NZ-ELI_LILLY_AND_COMPANY-NZ201009007363

PATIENT
  Age: 42 Year
  Sex: Female

DRUGS (5)
  1. ZYPREXA [Suspect]
     Dosage: 10 MG, DAILY (1/D)
     Dates: start: 20101104
  2. ZYPREXA [Suspect]
     Dosage: 10 MG, DAILY (1/D)
     Route: 048
     Dates: start: 20100817
  3. ZYPREXA [Suspect]
     Indication: BIPOLAR DISORDER
     Dosage: 20 MG, DAILY (1/D)
     Route: 048
     Dates: start: 20090706, end: 20100319
  4. ZYPREXA [Suspect]
     Dosage: 15 MG, DAILY (1/D)
     Route: 048
     Dates: start: 20100320, end: 20100816
  5. LITHIUM [Concomitant]
     Indication: BIPOLAR DISORDER
     Dosage: 750 MG, UNK
     Dates: start: 20100127

REACTIONS (12)
  - SPEECH DISORDER [None]
  - AMENORRHOEA [None]
  - BLOOD PROLACTIN INCREASED [None]
  - TONGUE DISORDER [None]
  - MENSTRUATION IRREGULAR [None]
  - MUSCULOSKELETAL STIFFNESS [None]
  - WEIGHT INCREASED [None]
  - PERSONALITY CHANGE [None]
  - SEDATION [None]
  - TREMOR [None]
  - EXTRAPYRAMIDAL DISORDER [None]
  - CONSTIPATION [None]
